FAERS Safety Report 10058839 (Version 1)
Quarter: 2014Q2

REPORT INFORMATION
  Report Type: Spontaneous
  Country: JP (occurrence: JP)
  Receive Date: 20140404
  Receipt Date: 20140404
  Transmission Date: 20141212
  Serious: Yes (Hospitalization, Other)
  Sender: FDA-Public Use
  Company Number: JP-009507513-1403JPN014184

PATIENT
  Age: 67 Year
  Sex: Male

DRUGS (7)
  1. NU-LOTAN TABLET 50 [Suspect]
     Indication: CARDIAC FAILURE CHRONIC
     Dosage: 50 MG, QD
     Route: 048
     Dates: start: 20120116
  2. STUDY DRUG (UNSPECIFIED) [Suspect]
     Indication: CARDIAC FAILURE CHRONIC
     Dosage: DAILY DOSAGE UNKNOWN
     Route: 065
     Dates: start: 20120207, end: 20120306
  3. ARTIST [Suspect]
     Indication: CARDIAC FAILURE CHRONIC
     Dosage: 7.5 MG, QD
     Route: 048
     Dates: start: 20120126
  4. ARTIST [Suspect]
     Dosage: 5 MG, QD
     Dates: start: 20130615
  5. FLUITRAN [Suspect]
     Indication: CARDIAC FAILURE CHRONIC
     Dosage: 50 MG, QD
     Route: 048
     Dates: start: 20120116
  6. FLUITRAN [Suspect]
     Dosage: 1 MG, QD
     Dates: start: 20111022
  7. WARFARIN POTASSIUM [Concomitant]
     Indication: ATRIAL FIBRILLATION
     Dosage: 2.5 MG, QD
     Route: 048

REACTIONS (7)
  - Spinal cord injury cervical [Recovering/Resolving]
  - Cervical myelopathy [Recovered/Resolved]
  - Loss of consciousness [Recovered/Resolved]
  - Laminaplasty [Recovering/Resolving]
  - Adams-Stokes syndrome [Unknown]
  - Fall [Unknown]
  - Orthostatic hypotension [Unknown]
